FAERS Safety Report 4813024-7 (Version None)
Quarter: 2005Q4

REPORT INFORMATION
  Report Type: 
  Country: None (occurrence: None)
  Receive Date: 20051028
  Receipt Date: 20051019
  Transmission Date: 20060501
  Serious: Yes (Disabling)
  Sender: FDA-Public Use
  Company Number: CA-JNJFOC-20050805695

PATIENT
  Sex: Male
  Weight: 72 kg

DRUGS (13)
  1. REMICADE [Suspect]
     Dosage: WEEK 6
     Route: 042
  2. REMICADE [Suspect]
     Dosage: WEEK 2
     Route: 042
  3. REMICADE [Suspect]
     Indication: RHEUMATOID ARTHRITIS
     Route: 042
  4. FOSAMAX [Concomitant]
     Route: 048
  5. CARBOCAL D [Concomitant]
     Route: 048
  6. CARBOCAL D [Concomitant]
     Route: 048
  7. CARBOCAL D [Concomitant]
     Dosage: 500 MG CALCIUM + 400 IU VITAMIN D TWICE A DAY
     Route: 048
  8. ZOLOFT [Concomitant]
     Route: 048
  9. SALBUTAMOL [Concomitant]
     Dosage: 1-2 PUFFS, 4 IN 1 DAY, AS NEEDED
     Route: 055
  10. FLOVENT [Concomitant]
     Dosage: 1 PUFF TWICE A DAY
     Route: 055
  11. METHOTREXATE [Concomitant]
     Route: 058
  12. PREDNISONE [Concomitant]
     Route: 048
  13. PREDNISONE [Concomitant]
     Route: 048

REACTIONS (2)
  - DRUG INEFFECTIVE [None]
  - SYNOVITIS [None]
